FAERS Safety Report 4559501-8 (Version None)
Quarter: 2005Q1

REPORT INFORMATION
  Report Type: 
  Country: None (occurrence: None)
  Receive Date: 20050119
  Receipt Date: 20041104
  Transmission Date: 20050727
  Serious: Yes (Hospitalization)
  Sender: FDA-Public Use
  Company Number: 2004091208

PATIENT
  Age: 73 Year
  Sex: Female
  Weight: 75 kg

DRUGS (7)
  1. CELEBREX [Suspect]
     Indication: SCOLIOSIS
     Dosage: 200 MG (200 MG, 1 IN 1 D), ORAL
     Route: 048
     Dates: end: 20040712
  2. CIPROFLOXACIN [Suspect]
     Indication: URINARY TRACT INFECTION
     Dosage: 100 MG (500 MG, 2 IN 1 D), ORAL
     Route: 048
     Dates: start: 20040710, end: 20040712
  3. CEFTRIAXONE [Suspect]
     Indication: URINARY TRACT INFECTION
     Dosage: INTRAVENOUS
     Route: 042
     Dates: start: 20040708, end: 20040709
  4. EMEPRONIUM BROMIDE (EMEPRONIUM BROMIDE) [Suspect]
  5. PANTOPRAZOLE SODIUM [Concomitant]
  6. METOPROLOL SUCCINATE (METORPROLOL SUCCINATE) [Concomitant]
  7. CINNARIZINE (CINNARIZINE) [Concomitant]

REACTIONS (9)
  - CONFUSIONAL STATE [None]
  - ESCHERICHIA INFECTION [None]
  - HEPATOCELLULAR DAMAGE [None]
  - LIVER DISORDER [None]
  - MEMORY IMPAIRMENT [None]
  - PATHOGEN RESISTANCE [None]
  - SPEECH DISORDER [None]
  - TRANSAMINASES INCREASED [None]
  - UROSEPSIS [None]
